FAERS Safety Report 14123188 (Version 1)
Quarter: 2017Q4

REPORT INFORMATION
  Report Type: Spontaneous
  Country: US (occurrence: US)
  Receive Date: 20171025
  Receipt Date: 20171025
  Transmission Date: 20180321
  Serious: No
  Sender: FDA-Public Use
  Company Number: US-AMGEN-USASP2017159570

PATIENT
  Age: 68 Year
  Sex: Male
  Weight: 95.24 kg

DRUGS (21)
  1. VITAMIN D [Concomitant]
     Active Substance: CHOLECALCIFEROL
     Dosage: 400 UNIT, UNK
  2. HYDROMORPHONE [Concomitant]
     Active Substance: HYDROMORPHONE
     Dosage: 12 MG, UNK
  3. FINASTERIDE. [Concomitant]
     Active Substance: FINASTERIDE
     Dosage: 1 MG, UNK
  4. TOPROL XL [Concomitant]
     Active Substance: METOPROLOL SUCCINATE
     Dosage: 100 MG, UNK
  5. MIRALAX [Concomitant]
     Active Substance: POLYETHYLENE GLYCOL 3350
     Dosage: UNK, 17G/DOSE POWDER
  6. ZOMETA [Concomitant]
     Active Substance: ZOLEDRONIC ACID
     Dosage: UNK, 4 MG/5 ML
  7. ENBREL [Suspect]
     Active Substance: ETANERCEPT
     Indication: PSORIATIC ARTHROPATHY
     Dosage: 50 MG, QWK
     Route: 058
     Dates: start: 2012
  8. LISINOPRIL + HIDROCLOROTIAZIDA [Concomitant]
     Active Substance: HYDROCHLOROTHIAZIDE\LISINOPRIL
     Dosage: 1 MG, UNK
  9. MELATONIN [Concomitant]
     Active Substance: MELATONIN
     Dosage: 3 MG, UNK
  10. REVLIMID [Concomitant]
     Active Substance: LENALIDOMIDE
     Dosage: UNK
  11. MOVANTIK [Concomitant]
     Active Substance: NALOXEGOL OXALATE
     Dosage: 12.5 MG, UNK
  12. ALLOPURINOL. [Concomitant]
     Active Substance: ALLOPURINOL
     Dosage: 100 MG, UNK
  13. OMEPRAZOLE. [Concomitant]
     Active Substance: OMEPRAZOLE
     Dosage: 10 MG, UNK
  14. TRAZODONE HYDROCHLORIDE. [Concomitant]
     Active Substance: TRAZODONE HYDROCHLORIDE
     Dosage: 100 MG, UNK
  15. TAMSULOSIN HCL [Concomitant]
     Active Substance: TAMSULOSIN
     Dosage: 0.4 MG, UNK
  16. FLUOXETINE HCL [Concomitant]
     Active Substance: FLUOXETINE HYDROCHLORIDE
     Dosage: 10 MG, UNK
  17. OXYCONTIN [Concomitant]
     Active Substance: OXYCODONE HYDROCHLORIDE
     Dosage: 20 MG, UNK
  18. ASPIRIN. [Concomitant]
     Active Substance: ASPIRIN
     Dosage: 81 MG, UNK
  19. ATORVASTATIN CALCIUM. [Concomitant]
     Active Substance: ATORVASTATIN CALCIUM
     Dosage: 10 MG, UNK
  20. DEXAMETHASONE. [Concomitant]
     Active Substance: DEXAMETHASONE
     Dosage: 4 MG, UNK
  21. NITROSTAT [Concomitant]
     Active Substance: NITROGLYCERIN
     Dosage: 0.3 MG, UNK
     Route: 060

REACTIONS (1)
  - Pain [Unknown]
